FAERS Safety Report 18681636 (Version 1)
Quarter: 2020Q4

REPORT INFORMATION
  Report Type: Spontaneous
  Country: AU (occurrence: AU)
  Receive Date: 20201230
  Receipt Date: 20201230
  Transmission Date: 20210114
  Serious: Yes (Other)
  Sender: FDA-Public Use
  Company Number: NVSC2020AU337347

PATIENT
  Age: 57 Year
  Sex: Female

DRUGS (1)
  1. TASIGNA [Suspect]
     Active Substance: NILOTINIB
     Indication: CHRONIC MYELOID LEUKAEMIA
     Dosage: 150 MG, QD
     Route: 048
     Dates: start: 201709, end: 202011

REACTIONS (2)
  - Myocardial ischaemia [Recovered/Resolved]
  - Peripheral vascular disorder [Recovered/Resolved]

NARRATIVE: CASE EVENT DATE: 20200511
